FAERS Safety Report 5626500-4 (Version None)
Quarter: 2008Q1

REPORT INFORMATION
  Report Type: 
  Country: None (occurrence: None)
  Receive Date: 20080214
  Receipt Date: 20080205
  Transmission Date: 20080703
  Serious: Yes (Hospitalization)
  Sender: FDA-Public Use
  Company Number: US-ABBOTT-08P-163-0437072-00

PATIENT
  Sex: Female
  Weight: 77.18 kg

DRUGS (4)
  1. HUMIRA [Suspect]
     Indication: RHEUMATOID ARTHRITIS
     Dosage: CHANGED TO PENS IN NOV 2007
     Route: 058
     Dates: start: 20071101, end: 20080118
  2. HUMIRA [Suspect]
     Dosage: SYRINGE
     Dates: start: 20040101, end: 20071101
  3. HUMIRA [Suspect]
     Dates: start: 20080201
  4. PAIN MEDICATION [Concomitant]
     Indication: PROCEDURAL PAIN
     Route: 048

REACTIONS (1)
  - KNEE ARTHROPLASTY [None]
